FAERS Safety Report 17962452 (Version 1)
Quarter: 2020Q2

REPORT INFORMATION
  Report Type: Spontaneous
  Country: US (occurrence: US)
  Receive Date: 20200629
  Receipt Date: 20200629
  Transmission Date: 20200714
  Serious: Yes (Death)
  Sender: FDA-Public Use
  Company Number: None

PATIENT
  Age: 45 Year
  Sex: Male

DRUGS (4)
  1. ENTECAVIR. [Suspect]
     Active Substance: ENTECAVIR
     Route: 048
     Dates: start: 20190610, end: 20200531
  2. XIFAXAN [Concomitant]
     Active Substance: RIFAXIMIN
     Dates: start: 20190823, end: 20200508
  3. PANTOPRAZOLE 40MG [Concomitant]
     Active Substance: PANTOPRAZOLE SODIUM
     Dates: start: 20190823, end: 20200521
  4. SPIRONOLACTONE 100MG [Concomitant]
     Active Substance: SPIRONOLACTONE
     Dates: start: 20191018, end: 20200530

REACTIONS (1)
  - Death [None]

NARRATIVE: CASE EVENT DATE: 20200629
